FAERS Safety Report 5748649-8 (Version None)
Quarter: 2008Q2

REPORT INFORMATION
  Report Type: 
  Country: None (occurrence: None)
  Receive Date: 20080521
  Receipt Date: 20080506
  Transmission Date: 20081010
  Serious: Yes (Death)
  Sender: FDA-Public Use
  Company Number: 2008S1007774

PATIENT
  Age: 39 Year
  Sex: Male
  Weight: 78.0187 kg

DRUGS (5)
  1. FENTANYL TRANSDERMAL SYSTEM [Suspect]
     Indication: PAIN
     Dosage: 100 UG;EVERY HOUR; TRANSDERMAL
     Route: 062
     Dates: start: 20080419
  2. DIAZEPAM [Suspect]
     Dosage: 5 MG; DAILY; ORAL
     Route: 048
     Dates: start: 20080419
  3. DEPAKOTE ER [Suspect]
     Dosage: 500 MG;TWICE A DAY; ORAL
     Route: 048
     Dates: start: 20080419
  4. CYMBALTA [Suspect]
     Dosage: 30 MG;DAILY;ORAL
     Route: 048
     Dates: start: 20080419
  5. LUNESTA [Suspect]
     Dosage: 3 MG; AT BEDTIME; ORAL
     Route: 048
     Dates: start: 20080419

REACTIONS (2)
  - BIPOLAR DISORDER [None]
  - CARDIO-RESPIRATORY ARREST [None]
